FAERS Safety Report 10662164 (Version 2)
Quarter: 2014Q4

REPORT INFORMATION
  Report Type: Spontaneous
  Country: US (occurrence: US)
  Receive Date: 20141218
  Receipt Date: 20141218
  Transmission Date: 20150529
  Serious: Yes (Other)
  Sender: FDA-Public Use
  Company Number: US-ACTELION-A-US2014-100081

PATIENT
  Age: 64 Year
  Sex: Male

DRUGS (2)
  1. RIOCIGUAT [Concomitant]
     Active Substance: RIOCIGUAT
  2. VENTAVIS [Suspect]
     Active Substance: ILOPROST
     Indication: PULMONARY ARTERIAL HYPERTENSION
     Dosage: 5 MCG, 6-9X DAILY
     Route: 055
     Dates: start: 20130808

REACTIONS (8)
  - Back pain [Unknown]
  - Weight decreased [Unknown]
  - Hypopnoea [Unknown]
  - Intervertebral disc injury [Unknown]
  - Cervical vertebral fracture [Unknown]
  - Spinal fusion surgery [Unknown]
  - Musculoskeletal discomfort [Unknown]
  - Condition aggravated [Unknown]
